FAERS Safety Report 4404321-8 (Version None)
Quarter: 2004Q3

REPORT INFORMATION
  Report Type: 
  Country: None (occurrence: None)
  Receive Date: 20040721
  Receipt Date: 20040721
  Transmission Date: 20050211
  Serious: No
  Sender: FDA-Public Use
  Company Number: None

PATIENT
  Age: 65 Year

DRUGS (13)
  1. OXYCODONE HCL [Suspect]
     Indication: PAIN
  2. DIPHENHYDRAMINE HCL [Suspect]
     Indication: PARKINSON'S DISEASE
  3. INSULIN [Suspect]
  4. TYL #3 [Concomitant]
  5. AMLODIPINE [Concomitant]
  6. CLONIDINE HCL [Concomitant]
  7. LASIX [Concomitant]
  8. HYDRALAZINE [Concomitant]
  9. PRIMIDONE [Concomitant]
  10. TRAZODONE HCL [Concomitant]
  11. ISORDIL [Concomitant]
  12. SIMVASTATIN [Concomitant]
  13. PRILOSEC [Concomitant]

REACTIONS (3)
  - HYPERGLYCAEMIA [None]
  - MENTAL STATUS CHANGES [None]
  - RENAL IMPAIRMENT [None]
